FAERS Safety Report 18424697 (Version 5)
Quarter: 2021Q2

REPORT INFORMATION
  Report Type: Report from Study
  Country: US (occurrence: US)
  Receive Date: 20201026
  Receipt Date: 20210411
  Transmission Date: 20210717
  Serious: No
  Sender: FDA-Public Use
  Company Number: US-B.I. PHARMACEUTICALS,INC./RIDGEFIELD-2020-BI-057243

PATIENT
  Age: 78 Year
  Sex: Female

DRUGS (2)
  1. OFEV [Suspect]
     Active Substance: NINTEDANIB
     Route: 048
     Dates: start: 20201124
  2. OFEV [Suspect]
     Active Substance: NINTEDANIB
     Indication: IDIOPATHIC PULMONARY FIBROSIS
     Dosage: 100 MG BY MOUTH TWICE DAILY
     Route: 048
     Dates: start: 20201007

REACTIONS (7)
  - Gastrointestinal pain [Not Recovered/Not Resolved]
  - Muscle spasms [Unknown]
  - Constipation [Unknown]
  - Flatulence [Not Recovered/Not Resolved]
  - Nausea [Not Recovered/Not Resolved]
  - Diarrhoea [Unknown]
  - Gastrointestinal pain [Recovering/Resolving]

NARRATIVE: CASE EVENT DATE: 20201011
